FAERS Safety Report 7632187-1 (Version None)
Quarter: 2011Q3

REPORT INFORMATION
  Report Type: 
  Country: None (occurrence: None)
  Receive Date: 20110725
  Receipt Date: 20110531
  Transmission Date: 20111222
  Serious: No
  Sender: FDA-Public Use
  Company Number: US-BRISTOL-MYERS SQUIBB COMPANY-15793649

PATIENT
  Age: 80 Year
  Sex: Female

DRUGS (4)
  1. ALTACE [Concomitant]
  2. COUMADIN [Suspect]
     Indication: CARDIAC ABLATION
     Dosage: COUMADIN 5 MG ONE TABLET DAILY ALTERNATING WITH 1/2 TABLET DAILY.
     Route: 048
     Dates: start: 20101125
  3. CHOLESTEROL MEDICATION [Concomitant]
  4. LASIX [Concomitant]

REACTIONS (1)
  - HAEMORRHAGE [None]
